FAERS Safety Report 8590895-2 (Version None)
Quarter: 2012Q3

REPORT INFORMATION
  Report Type: 
  Country: None (occurrence: None)
  Receive Date: 20120813
  Receipt Date: 20120806
  Transmission Date: 20120928
  Serious: Yes (Life-Threatening)
  Sender: FDA-Public Use
  Company Number: FR-BAXTER-2012BAX013704

PATIENT
  Sex: Female

DRUGS (12)
  1. ASPIRIN [Concomitant]
     Dosage: 1 UNIT
     Route: 048
     Dates: start: 20120628
  2. ACETAMINOPHEN [Concomitant]
     Route: 048
     Dates: start: 20120628
  3. VINCRISTINE [Suspect]
     Indication: NODAL MARGINAL ZONE B-CELL LYMPHOMA
     Dosage: 1 UNIT
     Route: 042
     Dates: start: 20120629, end: 20120629
  4. FASTURTEC [Concomitant]
     Dosage: 1 UNIT
     Route: 042
     Dates: start: 20120629
  5. PRAVASTATINE ARROW [Concomitant]
     Dosage: 1 UNIT
     Route: 048
  6. VENLAFAXINE [Concomitant]
     Route: 048
  7. POTASSIUM CHLORIDE [Concomitant]
     Route: 048
     Dates: start: 20120628
  8. RAMIPRIL [Concomitant]
     Route: 048
  9. CYCLOPHOSPHAMIDE [Suspect]
     Indication: NODAL MARGINAL ZONE B-CELL LYMPHOMA
     Route: 042
     Dates: start: 20120629, end: 20120629
  10. PREDNISONE TAB [Suspect]
     Indication: NODAL MARGINAL ZONE B-CELL LYMPHOMA
     Dosage: 1 TABLET
     Route: 048
     Dates: start: 20120628
  11. NEXIUM [Concomitant]
     Route: 048
     Dates: start: 20120629, end: 20120702
  12. BISOPROLOL FUMARATE [Concomitant]
     Dosage: 1 TABLET
     Route: 048
     Dates: start: 20120627, end: 20120701

REACTIONS (2)
  - SPLENIC INFARCTION [None]
  - SEPTIC SHOCK [None]
